FAERS Safety Report 11785588 (Version 1)
Quarter: 2015Q4

REPORT INFORMATION
  Report Type: Spontaneous
  Country: US (occurrence: None)
  Receive Date: 20151125
  Receipt Date: 20151125
  Transmission Date: 20160305
  Serious: Yes (Other)
  Sender: FDA-Public Use
  Company Number: None

PATIENT
  Age: 70 Year
  Sex: Female

DRUGS (1)
  1. FORTEO [Suspect]
     Active Substance: TERIPARATIDE
     Indication: OSTEOPOROSIS
     Route: 058
     Dates: start: 20151021, end: 20151110

REACTIONS (4)
  - Pain in extremity [None]
  - Unevaluable event [None]
  - Urticaria [None]
  - Feeling abnormal [None]

NARRATIVE: CASE EVENT DATE: 20151110
